FAERS Safety Report 4829421-X (Version None)
Quarter: 2005Q4

REPORT INFORMATION
  Report Type: 
  Country: None (occurrence: None)
  Receive Date: 20051028
  Receipt Date: 20050419
  Transmission Date: 20060501
  Serious: Yes (Disabling)
  Sender: FDA-Public Use
  Company Number: US014762

PATIENT
  Age: 55 Year
  Sex: Female
  Weight: 90.7194 kg

DRUGS (6)
  1. PROVIGIL [Suspect]
     Indication: NARCOLEPSY
     Dosage: 200 MG BID ORAL
     Route: 048
     Dates: start: 20030831
  2. PROVIGIL [Suspect]
     Indication: NARCOLEPSY
     Dosage: 200 MG TID ORAL
     Route: 048
  3. SYNTHROID [Concomitant]
  4. ACIPHEX [Concomitant]
  5. LIPITOR [Concomitant]
  6. WELLBUTRIN [Concomitant]

REACTIONS (2)
  - ANXIETY [None]
  - DEPRESSION [None]
